FAERS Safety Report 5667368-X (Version None)
Quarter: 2008Q1

REPORT INFORMATION
  Report Type: 
  Country: None (occurrence: None)
  Receive Date: 20080315
  Receipt Date: 20080121
  Transmission Date: 20080703
  Serious: No
  Sender: FDA-Public Use
  Company Number: US-ABBOTT-08P-163-0434626-00

PATIENT
  Sex: Female
  Weight: 77.18 kg

DRUGS (4)
  1. HUMIRA [Suspect]
     Indication: CROHN'S DISEASE
     Route: 058
  2. HUMIRA [Suspect]
     Route: 058
  3. HUMIRA [Suspect]
     Route: 058
     Dates: start: 20071128, end: 20071128
  4. AMBIEN CR [Concomitant]
     Indication: INITIAL INSOMNIA
     Route: 048
     Dates: start: 20080109

REACTIONS (8)
  - CHILLS [None]
  - DRY SKIN [None]
  - EAR DISCOMFORT [None]
  - PHARYNGOLARYNGEAL PAIN [None]
  - PRURITUS [None]
  - RASH [None]
  - RASH MACULAR [None]
  - UPPER RESPIRATORY TRACT INFECTION [None]
